FAERS Safety Report 13554445 (Version 1)
Quarter: 2017Q2

REPORT INFORMATION
  Report Type: Spontaneous
  Country: US (occurrence: US)
  Receive Date: 20170517
  Receipt Date: 20170517
  Transmission Date: 20170830
  Serious: Yes (Life-Threatening)
  Sender: FDA-Public Use
  Company Number: None

PATIENT
  Age: 66 Year
  Sex: Male
  Weight: 103.51 kg

DRUGS (1)
  1. ENALAPRIL 5 MG TABLETS [Suspect]
     Active Substance: ENALAPRIL
     Indication: BLOOD PRESSURE INCREASED
     Route: 048
     Dates: start: 19870601

REACTIONS (3)
  - Blood pressure increased [None]
  - Drug ineffective [None]
  - Product substitution issue [None]
